FAERS Safety Report 4282581-4 (Version None)
Quarter: 2004Q1

REPORT INFORMATION
  Report Type: 
  Country: None (occurrence: None)
  Receive Date: 20040130
  Receipt Date: 20010112
  Transmission Date: 20041129
  Serious: Yes (Life-Threatening, Hospitalization)
  Sender: FDA-Public Use
  Company Number: US-BRISTOL-MYERS SQUIBB COMPANY-10673879

PATIENT
  Age: 46 Year
  Sex: Female
  Weight: 65 kg

DRUGS (13)
  1. SERZONE [Suspect]
     Indication: DEPRESSION
     Dosage: BEGAN STARTER PACK,THEN RX ON ~21-JUL-00, RENEWED ~09-SEP-00 AND~13-OCT-00, STOPPED ~26-DEC-00
     Route: 048
     Dates: start: 20000701, end: 20001201
  2. ZOLOFT [Concomitant]
  3. KEFLEX [Concomitant]
     Indication: HORDEOLUM
     Dates: start: 20000721, end: 20000726
  4. ENTEX CAP [Concomitant]
     Dates: start: 20000818, end: 20000828
  5. PROVENTIL [Concomitant]
  6. PHENERGAN W/ CODEINE [Concomitant]
     Indication: INSOMNIA
     Dosage: 1-2 TEASPOONS EVERY 4-6 HOURS AS NECESSARY
     Route: 048
  7. PHENERGAN W/ CODEINE [Concomitant]
     Indication: COUGH
     Dosage: 1-2 TEASPOONS EVERY 4-6 HOURS AS NECESSARY
     Route: 048
  8. AZMACORT [Concomitant]
     Dosage: 3-4 TIMES PER WEEK
  9. ALLEGRA-D [Concomitant]
     Dates: start: 20000921, end: 20001021
  10. RANITIDINE [Concomitant]
  11. AMBIEN [Concomitant]
  12. PREDNISONE [Concomitant]
  13. SONATA [Concomitant]
     Indication: INSOMNIA

REACTIONS (7)
  - CHILLS [None]
  - DIARRHOEA [None]
  - DYSPNOEA [None]
  - FATIGUE [None]
  - HEPATITIS [None]
  - HORDEOLUM [None]
  - NASOPHARYNGITIS [None]
